FAERS Safety Report 18408964 (Version 2)
Quarter: 2023Q4

REPORT INFORMATION
  Report Type: Spontaneous
  Country: CA (occurrence: None)
  Receive Date: 20201020
  Receipt Date: 20231130
  Transmission Date: 20240110
  Serious: Yes (Hospitalization)
  Sender: FDA-Public Use
  Company Number: 2020SF34237

PATIENT
  Age: 60 Year
  Sex: Female

DRUGS (6)
  1. SYMBICORT [Suspect]
     Active Substance: BUDESONIDE\FORMOTEROL FUMARATE DIHYDRATE
     Indication: Product used for unknown indication
     Dosage: UNKNOWN UNKNOWN
  2. PREDNISONE [Suspect]
     Active Substance: PREDNISONE
     Indication: Product used for unknown indication
     Dosage: 5 MG, UNK, EVERY 2 DAYS
  3. PREDNISONE [Suspect]
     Active Substance: PREDNISONE
     Indication: Product used for unknown indication
  4. ALBUTEROL SULFATE\AMBROXOL HYDROCHLORIDE\GUAIFENESIN [Suspect]
     Active Substance: ALBUTEROL SULFATE\AMBROXOL HYDROCHLORIDE\GUAIFENESIN
     Indication: Product used for unknown indication
     Dosage: 4 PUFF, UNK4.0DF UNKNOWN
  5. SPIRIVA [Suspect]
     Active Substance: TIOTROPIUM BROMIDE MONOHYDRATE
     Indication: Product used for unknown indication
     Dosage: UNK
  6. NUCALA [Concomitant]
     Active Substance: MEPOLIZUMAB
     Indication: Product used for unknown indication
     Dosage: UNK

REACTIONS (9)
  - Asthma [Unknown]
  - Full blood count abnormal [Unknown]
  - Dyspnoea [Unknown]
  - Forced expiratory flow decreased [Unknown]
  - Forced vital capacity decreased [Unknown]
  - Loss of personal independence in daily activities [Unknown]
  - Sleep disorder [Unknown]
  - Cough [Unknown]
  - Therapeutic product effect incomplete [Unknown]
